FAERS Safety Report 12931924 (Version 3)
Quarter: 2018Q3

REPORT INFORMATION
  Report Type: Spontaneous
  Country: FI (occurrence: FI)
  Receive Date: 20161111
  Receipt Date: 20180911
  Transmission Date: 20181010
  Serious: Yes (Death, Other)
  Sender: FDA-Public Use
  Company Number: FI-ROCHE-1850813

PATIENT
  Age: 65 Year
  Sex: Female

DRUGS (7)
  1. MABTHERA [Suspect]
     Active Substance: RITUXIMAB
     Indication: SCLERODERMA
     Dosage: 1000 MG TWICE
     Route: 041
     Dates: start: 20160806, end: 20160822
  2. MABTHERA [Suspect]
     Active Substance: RITUXIMAB
     Indication: SYSTEMIC SCLERODERMA
  3. THYROXIN [Concomitant]
     Active Substance: LEVOTHYROXINE
     Indication: HYPOTHYROIDISM
  4. MYCOPHENOLATE [Concomitant]
     Active Substance: MYCOPHENOLIC ACID
     Indication: SCLERODACTYLIA
     Dosage: 500?1000 MG TWICE A DAY
     Route: 065
     Dates: start: 20160602
  5. PREDNISOLON [Concomitant]
     Active Substance: PREDNISOLONE
     Indication: SCLERODACTYLIA
     Dosage: 40?15 MG DAILY
     Route: 065
     Dates: start: 20160602, end: 201610
  6. ADALAT [Concomitant]
     Active Substance: NIFEDIPINE
     Indication: SCLERODACTYLIA
     Route: 065
     Dates: start: 201406, end: 20160822
  7. PREDNISOLON [Concomitant]
     Active Substance: PREDNISOLONE
     Route: 065
     Dates: start: 201610

REACTIONS (6)
  - Systemic scleroderma [Fatal]
  - Oesophageal candidiasis [Unknown]
  - Oedema peripheral [Unknown]
  - Off label use [Fatal]
  - Pneumonia [Unknown]
  - Abscess [Unknown]

NARRATIVE: CASE EVENT DATE: 20160806
